FAERS Safety Report 4638941-2 (Version None)
Quarter: 2005Q2

REPORT INFORMATION
  Report Type: 
  Country: None (occurrence: None)
  Receive Date: 20050419
  Receipt Date: 20050324
  Transmission Date: 20051028
  Serious: Yes (Disabling)
  Sender: FDA-Public Use
  Company Number: JP-GLAXOSMITHKLINE-B0375989A

PATIENT
  Age: 85 Year
  Sex: Female
  Weight: 39 kg

DRUGS (13)
  1. ZOVIRAX [Suspect]
     Indication: HERPES ZOSTER
     Dosage: 250MG THREE TIMES PER DAY
     Route: 042
     Dates: start: 20050315, end: 20050321
  2. PONTAL [Concomitant]
     Indication: HERPES ZOSTER
     Dosage: 750MG PER DAY
     Route: 048
     Dates: start: 20050315, end: 20050328
  3. JUVELA NICOTINATE [Concomitant]
     Indication: HERPES ZOSTER
     Dosage: 300MG PER DAY
     Route: 048
     Dates: start: 20050315, end: 20050328
  4. PINATOS [Concomitant]
     Dosage: 30MG PER DAY
     Route: 048
  5. CALSLOT [Concomitant]
     Indication: HYPERTENSION
     Dosage: 20MG PER DAY
     Route: 048
     Dates: end: 20050321
  6. EPAND [Concomitant]
     Indication: ATHEROSCLEROSIS OBLITERANS
     Dosage: 1800MG PER DAY
     Route: 048
     Dates: end: 20050318
  7. NEOLAMIN [Concomitant]
     Indication: HERPES ZOSTER
     Dosage: 10ML PER DAY
     Route: 042
     Dates: start: 20050315, end: 20050328
  8. NEUROTROPIN [Concomitant]
     Indication: HERPES ZOSTER
     Dosage: 3ML PER DAY
     Route: 042
     Dates: start: 20050315, end: 20050328
  9. MYSLEE [Concomitant]
     Indication: INSOMNIA
     Dosage: 5MG PER DAY
     Route: 048
     Dates: start: 20050317, end: 20050328
  10. FERROMIA (JAPAN) [Concomitant]
     Indication: ANAEMIA
     Dosage: 100MG PER DAY
     Route: 048
     Dates: end: 20050318
  11. EPADEL [Concomitant]
     Indication: ATHEROSCLEROSIS OBLITERANS
     Dosage: 1800MG PER DAY
     Route: 048
     Dates: start: 20050319
  12. NORVASC [Concomitant]
     Indication: HYPERTENSION
     Dosage: 5MG PER DAY
     Route: 048
     Dates: start: 20050322
  13. ANDERM [Concomitant]
     Indication: HERPES ZOSTER
     Route: 061
     Dates: start: 20050315, end: 20050328

REACTIONS (2)
  - HEADACHE [None]
  - HYPERTENSION [None]
